FAERS Safety Report 8774320 (Version 2)
Quarter: 2012Q4

REPORT INFORMATION
  Report Type: 
  Country: US (occurrence: US)
  Receive Date: 20120907
  Receipt Date: 20120926
  Transmission Date: 20130627
  Serious: No
  Sender: FDA-Public Use
  Company Number: US-PFIZER INC-2012219985

PATIENT
  Age: 59 Year
  Sex: Male
  Weight: 63 kg

DRUGS (4)
  1. NEURONTIN [Suspect]
     Indication: NEUROPATHY PERIPHERAL
     Dosage: UNK
  2. METHADONE [Suspect]
     Indication: NEUROPATHY PERIPHERAL
     Dosage: 10 mg, 2x/day
  3. LIDODERM [Suspect]
     Indication: NEUROPATHY PERIPHERAL
     Dosage: UNK
  4. KALETRA [Concomitant]
     Indication: HIV INFECTION
     Dosage: 400 mg, 2x/day

REACTIONS (1)
  - Drug ineffective [Unknown]
